FAERS Safety Report 20938462 (Version 1)
Quarter: 2022Q2

REPORT INFORMATION
  Report Type: Spontaneous
  Country: US (occurrence: US)
  Receive Date: 20220609
  Receipt Date: 20220609
  Transmission Date: 20220720
  Serious: No
  Sender: FDA-Public Use
  Company Number: US-ORGANON-O2206USA000526

PATIENT
  Age: 18 Year
  Sex: Female

DRUGS (1)
  1. NEXPLANON [Suspect]
     Active Substance: ETONOGESTREL
     Dosage: 1 DOSAGE FORM (1 IMPLANT)
     Route: 059
     Dates: start: 20220426

REACTIONS (2)
  - Heavy menstrual bleeding [Not Recovered/Not Resolved]
  - Hypomenorrhoea [Not Recovered/Not Resolved]

NARRATIVE: CASE EVENT DATE: 20220520
